FAERS Safety Report 14782638 (Version 5)
Quarter: 2019Q2

REPORT INFORMATION
  Report Type: Spontaneous
  Country: US (occurrence: US)
  Receive Date: 20180420
  Receipt Date: 20190423
  Transmission Date: 20190711
  Serious: Yes (Other)
  Sender: FDA-Public Use
  Company Number: US-BRISTOL-MYERS SQUIBB COMPANY-BMS-2018-036811

PATIENT
  Age: 55 Year
  Sex: Female
  Weight: 112.93 kg

DRUGS (1)
  1. ORENCIA [Suspect]
     Active Substance: ABATACEPT
     Indication: RHEUMATOID ARTHRITIS
     Dosage: 125 MG, QWK
     Route: 058
     Dates: start: 201801

REACTIONS (8)
  - Nasopharyngitis [Unknown]
  - Chest pain [Unknown]
  - Hypersensitivity [Unknown]
  - Burning sensation [Unknown]
  - Arthropathy [Unknown]
  - Pain [Unknown]
  - Arthralgia [Unknown]
  - Neuropathy peripheral [Unknown]

NARRATIVE: CASE EVENT DATE: 201805
